FAERS Safety Report 24065755 (Version 1)
Quarter: 2024Q3

REPORT INFORMATION
  Report Type: Spontaneous
  Country: US (occurrence: US)
  Receive Date: 20240709
  Receipt Date: 20240709
  Transmission Date: 20241017
  Serious: No
  Sender: LUPIN
  Company Number: US-LUPIN PHARMACEUTICALS INC.-2024-06381

PATIENT

DRUGS (2)
  1. BUPROPION HYDROCHLORIDE XL [Suspect]
     Active Substance: BUPROPION HYDROCHLORIDE
     Indication: Product used for unknown indication
     Dosage: UNK
     Route: 065
  2. ZOLOFT [Concomitant]
     Active Substance: SERTRALINE HYDROCHLORIDE
     Indication: Product used for unknown indication
     Dosage: UNK, HS
     Route: 065

REACTIONS (13)
  - Anxiety [Unknown]
  - Tinnitus [Unknown]
  - Hyperhidrosis [Unknown]
  - Irritability [Unknown]
  - Fatigue [Unknown]
  - Feeling abnormal [Unknown]
  - Somnolence [Unknown]
  - Dizziness [Unknown]
  - Hypersomnia [Unknown]
  - Restlessness [Unknown]
  - Brain fog [Unknown]
  - Tachyphrenia [Unknown]
  - Product substitution issue [Unknown]
